FAERS Safety Report 4752226-5 (Version None)
Quarter: 2005Q3

REPORT INFORMATION
  Report Type: 
  Country: None (occurrence: None)
  Receive Date: 20050825
  Receipt Date: 20050801
  Transmission Date: 20060218
  Serious: Yes (Hospitalization)
  Sender: FDA-Public Use
  Company Number: US-ABBOTT-05P-163-0307212-00

PATIENT
  Sex: Male

DRUGS (10)
  1. RITONAVIR SOFT GELATIN CAPSULES [Suspect]
     Indication: HIV INFECTION
     Route: 048
     Dates: start: 20030709, end: 20050719
  2. RITONAVIR SOFT GELATIN CAPSULES [Suspect]
     Route: 048
     Dates: start: 20050720
  3. TIPRANAVIR [Concomitant]
     Indication: HIV INFECTION
     Dosage: 1000/400
     Route: 048
     Dates: start: 20030709, end: 20050719
  4. TIPRANAVIR [Concomitant]
     Route: 048
     Dates: start: 20050720
  5. ZIDOVUDINE [Concomitant]
     Indication: HIV INFECTION
     Route: 048
     Dates: start: 20050720
  6. LAMIVUDINE [Concomitant]
     Indication: HIV INFECTION
     Route: 048
     Dates: start: 20050720
  7. FUZEON [Concomitant]
     Indication: HIV INFECTION
     Route: 058
     Dates: start: 20050720
  8. FUZEON [Concomitant]
     Route: 058
     Dates: start: 20030709, end: 20050719
  9. VIREAD [Concomitant]
     Indication: HIV INFECTION
     Route: 048
     Dates: start: 20050720
  10. VIREAD [Concomitant]
     Route: 048
     Dates: start: 20030709, end: 20050719

REACTIONS (1)
  - APPENDICITIS [None]
